FAERS Safety Report 4326468-7 (Version None)
Quarter: 2004Q1

REPORT INFORMATION
  Report Type: 
  Country: None (occurrence: None)
  Receive Date: 20040323
  Receipt Date: 20030626
  Transmission Date: 20041129
  Serious: Yes (Other)
  Sender: FDA-Public Use
  Company Number: 0300009EN0020P

PATIENT
  Sex: Male
  Weight: 27.4 kg

DRUGS (3)
  1. ONCASPAR [Suspect]
     Indication: LEUKAEMIA
     Dosage: 2300 750 U/ML IM
     Dates: start: 20030527, end: 20030527
  2. SEPTRA [Concomitant]
  3. CHLORHEXIDINE MOUTH RINSE [Concomitant]

REACTIONS (3)
  - ERYTHEMA [None]
  - FACE OEDEMA [None]
  - URTICARIA [None]
